FAERS Safety Report 24255871 (Version 1)
Quarter: 2024Q3

REPORT INFORMATION
  Report Type: Spontaneous
  Country: US (occurrence: US)
  Receive Date: 20240827
  Receipt Date: 20240827
  Transmission Date: 20241017
  Serious: No
  Sender: SUNOVION
  Company Number: US-SMPA-2024SPA000615AA

PATIENT

DRUGS (2)
  1. GEMTESA [Suspect]
     Active Substance: VIBEGRON
     Dosage: UNK
     Route: 048
     Dates: start: 20221104
  2. CEVIMELINE HYDROCHLORIDE [Suspect]
     Active Substance: CEVIMELINE HYDROCHLORIDE
     Indication: Dry mouth
     Dosage: UNK
     Route: 065

REACTIONS (2)
  - Dry mouth [Unknown]
  - Drug interaction [Unknown]
